FAERS Safety Report 16985785 (Version 1)
Quarter: 2019Q4

REPORT INFORMATION
  Report Type: Spontaneous
  Country: US (occurrence: US)
  Receive Date: 20190917
  Receipt Date: 20190917
  Transmission Date: 20200122
  Serious: No
  Sender: FDA-Public Use
  Company Number: None

PATIENT
  Age: 69 Year
  Sex: Male

DRUGS (1)
  1. APIXABAN [Suspect]
     Active Substance: APIXABAN
     Indication: DEEP VEIN THROMBOSIS
     Dosage: ?          OTHER DOSE:5 UNITS;?
     Route: 048
     Dates: start: 20190428, end: 20190428

REACTIONS (6)
  - Petechiae [None]
  - Oedema peripheral [None]
  - Peripheral venous disease [None]
  - Oedema [None]
  - Treatment noncompliance [None]
  - Rash [None]

NARRATIVE: CASE EVENT DATE: 20190430
